FAERS Safety Report 5295299-6 (Version None)
Quarter: 2007Q2

REPORT INFORMATION
  Report Type: 
  Country: None (occurrence: None)
  Receive Date: 20070412
  Receipt Date: 20070404
  Transmission Date: 20071010
  Serious: Yes (Other)
  Sender: FDA-Public Use
  Company Number: US-ABBOTT-07P-163-0364109-00

PATIENT
  Sex: Female
  Weight: 54.48 kg

DRUGS (5)
  1. HUMIRA [Suspect]
     Indication: CROHN'S DISEASE
     Route: 050
     Dates: start: 20070112, end: 20070313
  2. PRENATAL VITAMIN NOS [Concomitant]
     Indication: DRUG USE FOR UNKNOWN INDICATION
     Route: 048
     Dates: start: 20070112, end: 20070313
  3. AZITHROMYCIN [Concomitant]
     Indication: CHLAMYDIAL INFECTION
     Route: 048
     Dates: start: 20070307, end: 20070307
  4. IRON [Concomitant]
     Indication: ANAEMIA
     Route: 048
     Dates: start: 20070307, end: 20070313
  5. PARACETAMOL [Concomitant]
     Indication: PAIN
     Route: 048
     Dates: start: 20070311, end: 20070311

REACTIONS (1)
  - ABORTION SPONTANEOUS [None]
